FAERS Safety Report 9596976 (Version 2)
Quarter: 2014Q1

REPORT INFORMATION
  Report Type: Spontaneous
  Country: GB (occurrence: GB)
  Receive Date: 20131004
  Receipt Date: 20140131
  Transmission Date: 20141002
  Serious: Yes (Other)
  Sender: FDA-Public Use
  Company Number: ALCN2013GB004927

PATIENT
  Sex: 0

DRUGS (3)
  1. IOPIDINE [Suspect]
     Indication: GLAUCOMA
     Dosage: UNK UNK, TID
     Route: 047
  2. IOPIDINE [Suspect]
     Indication: OFF LABEL USE
  3. THYROXINE [Concomitant]

REACTIONS (5)
  - Swelling face [Unknown]
  - Eye swelling [Unknown]
  - Visual impairment [Unknown]
  - Pain [Unknown]
  - Overdose [Unknown]
